FAERS Safety Report 6752591-3 (Version None)
Quarter: 2010Q2

REPORT INFORMATION
  Report Type: 
  Country: None (occurrence: None)
  Receive Date: 20100602
  Receipt Date: 20030131
  Transmission Date: 20101027
  Serious: Yes (Other)
  Sender: FDA-Public Use
  Company Number: CH-PFIZER INC-2003004726

PATIENT
  Age: 76 Year
  Sex: Male

DRUGS (9)
  1. VIAGRA [Suspect]
     Indication: ERECTILE DYSFUNCTION
     Route: 048
     Dates: start: 20021211, end: 20021215
  2. CORDARONE [Interacting]
     Route: 048
  3. LASIX [Concomitant]
     Route: 048
  4. ZAROXOLYNE [Concomitant]
     Route: 048
  5. NORVASC [Concomitant]
     Route: 048
  6. FOSICOMP [Concomitant]
     Route: 048
  7. ALLOPURINOL [Concomitant]
     Route: 048
  8. DIAMICRON [Concomitant]
     Route: 048
  9. CASODEX [Concomitant]
     Route: 048

REACTIONS (5)
  - DERMATITIS EXFOLIATIVE [None]
  - DIPLOPIA [None]
  - DRUG INTERACTION [None]
  - FATIGUE [None]
  - SYNCOPE [None]
